FAERS Safety Report 5615393-7 (Version None)
Quarter: 2008Q1

REPORT INFORMATION
  Report Type: 
  Country: None (occurrence: None)
  Receive Date: 20080206
  Receipt Date: 20080130
  Transmission Date: 20080703
  Serious: Yes (Other)
  Sender: FDA-Public Use
  Company Number: IE-WYE-G00909308

PATIENT
  Sex: Male

DRUGS (3)
  1. EFFEXOR XR [Suspect]
     Dosage: 150MG, FREQUENCY UNKNOWN
     Route: 048
  2. EFFEXOR XR [Suspect]
     Dosage: 75MG, FREQUENCY UNKNOWN
  3. EFFEXOR XR [Suspect]
     Dosage: 150MG, FREQUENCY UNKNOWN

REACTIONS (3)
  - CONVULSION [None]
  - DYSPHEMIA [None]
  - TREMOR [None]
